FAERS Safety Report 7989374 (Version 3)
Quarter: 2013Q1

REPORT INFORMATION
  Report Type: Spontaneous
  Country: US (occurrence: None)
  Receive Date: 20110524
  Receipt Date: 20130102
  Transmission Date: 20140127
  Serious: Yes (Hospitalization)
  Sender: FDA-Public Use
  Company Number: CIP11000566

PATIENT
  Age: 63 Year
  Sex: Female
  Weight: 48.5 kg

DRUGS (15)
  1. ACTONEL [Suspect]
     Dosage: 35 MG WEEKLY, ORAL
     Route: 048
     Dates: start: 20030221
  2. ACTONEL [Suspect]
     Dosage: 30 MG, ORAL
     Route: 048
     Dates: start: 20020530
  3. ACTONEL [Suspect]
     Dosage: 5 MG DAILY, ORAL
     Route: 048
     Dates: start: 20010808
  4. FOSAMAX [Suspect]
     Dosage: 70 MG WEEKLY, ORAL
     Route: 048
     Dates: start: 20040923, end: 20090221
  5. FOSAMAX PLUS D [Suspect]
     Dosage: 70 MG WEEKLY, ORAL
     Route: 048
     Dates: start: 20060421
  6. FOSAMAX [Suspect]
     Indication: OSTEOPENIA
     Dosage: 35 MG WEEKLY, ORAL
     Route: 048
     Dates: start: 20030415
  7. EVISTA [Concomitant]
     Dosage: 35 MG, 1/WEEK, ORAL
     Route: 048
     Dates: start: 20031107
  8. CLARITIN-D [Concomitant]
  9. AMBIEN [Concomitant]
  10. PREMPRO [Concomitant]
  11. CELEBREX (CELECOXIB) [Concomitant]
  12. ZYRTEC [Concomitant]
  13. FLONASE [Concomitant]
  14. LEVAQUIN (LEVOFLOXACIN) [Concomitant]
  15. CODEINE\PROMETHAZINE [Concomitant]

REACTIONS (13)
  - Femur fracture [None]
  - Fracture displacement [None]
  - Fall [None]
  - Arthralgia [None]
  - Groin pain [None]
  - Pain in extremity [None]
  - Trendelenburg^s symptom [None]
  - Pathological fracture [None]
  - Post procedural haematoma [None]
  - Ecchymosis [None]
  - Muscular weakness [None]
  - Gait disturbance [None]
  - Haematoma [None]
